FAERS Safety Report 9269039 (Version 4)
Quarter: 2013Q4

REPORT INFORMATION
  Report Type: Report from Study
  Country: ES (occurrence: ES)
  Receive Date: 20130503
  Receipt Date: 20131007
  Transmission Date: 20140711
  Serious: Yes (Other)
  Sender: FDA-Public Use
  Company Number: ES-ROCHE-1216856

PATIENT
  Age: 71 Year
  Sex: Male

DRUGS (3)
  1. VEMURAFENIB [Suspect]
     Indication: MALIGNANT MELANOMA
     Dosage: LAST DOSE PRIOR TO EVENT ON 02/MAY/2012
     Route: 048
     Dates: start: 20120324
  2. LORAZEPAM [Concomitant]
     Route: 065
     Dates: start: 2012
  3. IBUPROFEN [Concomitant]
     Route: 065
     Dates: start: 2012

REACTIONS (1)
  - Carcinoma in situ of skin [Recovered/Resolved]
